FAERS Safety Report 19832246 (Version 1)
Quarter: 2021Q3

REPORT INFORMATION
  Report Type: Report from Study
  Country: US (occurrence: US)
  Receive Date: 20210914
  Receipt Date: 20210914
  Transmission Date: 20211014
  Serious: Yes (Death, Life-Threatening, Hospitalization)
  Sender: FDA-Public Use
  Company Number: US-EXELIXIS-XL18421043060

PATIENT
  Age: 77 Year
  Sex: Male
  Weight: 64.6 kg

DRUGS (11)
  1. CALCIUM CARBONATE AND VITAMIN D3 [Concomitant]
     Active Substance: CALCIUM CARBONATE\CHOLECALCIFEROL
  2. COREG [Concomitant]
     Active Substance: CARVEDILOL
  3. DEXAMETHASONE. [Concomitant]
     Active Substance: DEXAMETHASONE
  4. VANTIN [Concomitant]
     Active Substance: CEFPODOXIME PROXETIL
  5. NYSTATIN. [Concomitant]
     Active Substance: NYSTATIN
  6. REVATIO [Concomitant]
     Active Substance: SILDENAFIL CITRATE
  7. OMEGA?3 FISH OIL [Concomitant]
     Active Substance: FISH OIL\OMEGA-3 FATTY ACIDS
  8. XL184 [Suspect]
     Active Substance: CABOZANTINIB
     Indication: LIPOSARCOMA
     Dosage: 60 MG, QD
     Route: 048
     Dates: start: 20210721, end: 20210804
  9. MULTIVITAMIN [Concomitant]
     Active Substance: VITAMINS
  10. SILDENAFIL. [Concomitant]
     Active Substance: SILDENAFIL
  11. DIOVAN [Concomitant]
     Active Substance: VALSARTAN

REACTIONS (6)
  - Septic shock [Fatal]
  - Systemic candida [Unknown]
  - Blood loss anaemia [Unknown]
  - Respiratory failure [Unknown]
  - Atrial fibrillation [Unknown]
  - Acute kidney injury [Unknown]

NARRATIVE: CASE EVENT DATE: 20210804
